FAERS Safety Report 23704788 (Version 2)
Quarter: 2024Q2

REPORT INFORMATION
  Report Type: Report from Study
  Country: US (occurrence: US)
  Receive Date: 20240404
  Receipt Date: 20240419
  Transmission Date: 20240716
  Serious: Yes (Hospitalization)
  Sender: FDA-Public Use
  Company Number: US-JNJFOC-20240381547

PATIENT
  Age: 39 Year
  Sex: Male

DRUGS (5)
  1. SPRAVATO [Suspect]
     Active Substance: ESKETAMINE
     Indication: Depression
     Dosage: ^56 MG, 4 TOTAL DOSES^
     Dates: start: 20240130, end: 20240201
  2. SPRAVATO [Suspect]
     Active Substance: ESKETAMINE
     Dosage: ^84 MG, 13 TOTAL DOSES^
     Dates: start: 20240206, end: 20240326
  3. WELLBUTRIN [Concomitant]
     Active Substance: BUPROPION HYDROCHLORIDE
     Dates: end: 2024
  4. MIRTAZAPINE [Concomitant]
     Active Substance: MIRTAZAPINE
  5. DIAZEPAM [Concomitant]
     Active Substance: DIAZEPAM
     Dosage: CURRENTLY BEING TAPERED DOWN

REACTIONS (3)
  - Drug ineffective [Unknown]
  - Drug tolerance [Unknown]
  - Product dose omission issue [Unknown]

NARRATIVE: CASE EVENT DATE: 20240101
